FAERS Safety Report 24461441 (Version 1)
Quarter: 2024Q4

REPORT INFORMATION
  Report Type: Report from Study
  Country: US (occurrence: US)
  Receive Date: 20241018
  Receipt Date: 20241018
  Transmission Date: 20250114
  Serious: No
  Sender: ROCHE
  Company Number: US-ROCHE-3537839

PATIENT
  Age: 18 Year
  Sex: Female
  Weight: 61.69 kg

DRUGS (7)
  1. RITUXAN [Suspect]
     Active Substance: RITUXIMAB
     Indication: Henoch-Schonlein purpura
     Dosage: SECOND IN TWO WEEKS, EXACT DATE UNKNOWN
     Route: 042
     Dates: start: 20240330
  2. RITUXAN [Suspect]
     Active Substance: RITUXIMAB
     Indication: Nephritic syndrome
  3. RITUXAN [Suspect]
     Active Substance: RITUXIMAB
     Indication: Henoch-Schonlein purpura
  4. FUROSEMIDE [Concomitant]
     Active Substance: FUROSEMIDE
  5. PREDNISONE [Concomitant]
     Active Substance: PREDNISONE
  6. LOSARTAN [Concomitant]
     Active Substance: LOSARTAN
  7. SULFAMETHOXAZOLE\TRIMETHOPRIM [Concomitant]
     Active Substance: SULFAMETHOXAZOLE\TRIMETHOPRIM

REACTIONS (6)
  - Flushing [Recovered/Resolved]
  - Pruritus [Recovered/Resolved]
  - Throat tightness [Recovered/Resolved]
  - Urticaria [Recovered/Resolved]
  - Off label use [Unknown]
  - Hyperkalaemia [Unknown]

NARRATIVE: CASE EVENT DATE: 20240330
